FAERS Safety Report 8010579-9 (Version None)
Quarter: 2011Q4

REPORT INFORMATION
  Report Type: 
  Country: None (occurrence: None)
  Receive Date: 20111228
  Receipt Date: 20111214
  Transmission Date: 20120403
  Serious: Yes (Hospitalization, Other)
  Sender: FDA-Public Use
  Company Number: PHHY2011US110251

PATIENT
  Age: 50 Year
  Sex: Female

DRUGS (23)
  1. FERROUS SULFATE TAB [Concomitant]
     Dosage: 325 MG, UNK
     Route: 048
  2. MYFORTIC [Suspect]
     Dosage: 1080 MG,
     Route: 048
  3. VITAMIN D [Concomitant]
     Dosage: 50000 U, UNK
     Route: 048
     Dates: start: 20110924
  4. FIORICET [Concomitant]
     Dosage: 1 DF, UNK
     Route: 048
  5. ASPIRIN [Concomitant]
     Dosage: 81 MG, UNK
     Route: 048
  6. SYNTHROID [Concomitant]
     Dosage: 150 UG, UNK
     Route: 048
     Dates: start: 20110924
  7. BISACODYL [Concomitant]
     Dosage: 5 MG, UNK
     Route: 048
  8. COREG [Concomitant]
     Dosage: 25 MG, UNK
     Route: 048
  9. NOVOLOG [Concomitant]
     Dosage: 100 U/ML, UNK
     Route: 058
  10. MYFORTIC [Suspect]
     Dosage: 720 MG,
     Route: 048
     Dates: start: 20110924
  11. LASIX [Concomitant]
     Dosage: 80 MG, UNK
     Route: 048
     Dates: start: 20110924
  12. OSCAL 500-D [Concomitant]
     Dosage: 200 U, UNK
     Route: 048
  13. PRILOSEC [Concomitant]
     Dosage: 20 MG, UNK
     Route: 048
  14. DIOVAN [Concomitant]
     Dosage: 320 MG,DAILY
     Route: 048
  15. PROGRAF [Concomitant]
     Dosage: 4 MG, BID
     Route: 048
     Dates: start: 20110924
  16. FLONASE [Concomitant]
  17. ADVAIR DISKUS 100/50 [Concomitant]
  18. PROMETHAZINE [Concomitant]
     Dosage: 25 MG, UNK
     Route: 048
  19. SHOHL'S SOLUTION [Concomitant]
     Dosage: 30 ML, UNK
     Dates: start: 20110924
  20. PROAIR (FLUTICASONE PROPIONATE) [Concomitant]
  21. NORVASC [Concomitant]
     Dosage: 5 MG, DAILY
     Route: 048
  22. PREDNISONE [Concomitant]
     Dosage: 5 MG, UNK
     Route: 048
  23. CELEXA [Concomitant]
     Dosage: 40 MG, UNK
     Route: 048

REACTIONS (18)
  - BLOOD CREATININE INCREASED [None]
  - ASTHENIA [None]
  - BLOOD CHLORIDE INCREASED [None]
  - DIABETES MELLITUS INADEQUATE CONTROL [None]
  - KIDNEY FIBROSIS [None]
  - HYPOGLYCAEMIA [None]
  - FREQUENT BOWEL MOVEMENTS [None]
  - FATIGUE [None]
  - RENAL TUBULAR NECROSIS [None]
  - HAEMATOCRIT DECREASED [None]
  - RENAL TUBULAR ATROPHY [None]
  - VOMITING [None]
  - HAEMOGLOBIN DECREASED [None]
  - ACUTE PRERENAL FAILURE [None]
  - NAUSEA [None]
  - RENAL FAILURE ACUTE [None]
  - GLOMERULOSCLEROSIS [None]
  - DIARRHOEA [None]
